FAERS Safety Report 22265579 (Version 1)
Quarter: 2023Q2

REPORT INFORMATION
  Report Type: Spontaneous
  Country: US (occurrence: None)
  Receive Date: 20230426
  Receipt Date: 20230426
  Transmission Date: 20230721
  Serious: Yes (Death)
  Sender: FDA-Public Use
  Company Number: None

PATIENT
  Age: 79 Year
  Sex: Male
  Weight: 37.78 kg

DRUGS (2)
  1. ABEMACICLIB [Suspect]
     Active Substance: ABEMACICLIB
     Indication: Prostate cancer
     Dosage: FREQUENCY : TWICE A DAY;?
     Route: 048
     Dates: start: 20230116, end: 20230203
  2. ATEZOLIZUMAB [Suspect]
     Active Substance: ATEZOLIZUMAB
     Indication: Prostate cancer
     Dosage: OTHER FREQUENCY : EVERY 21 DAYS;?
     Dates: start: 20230116, end: 20230116

REACTIONS (11)
  - Sepsis [None]
  - Anaemia [None]
  - Gram stain positive [None]
  - Aspartate aminotransferase increased [None]
  - Alanine aminotransferase increased [None]
  - Blood alkaline phosphatase increased [None]
  - Multiple organ dysfunction syndrome [None]
  - Cellulitis [None]
  - Staphylococcal infection [None]
  - Staphylococcal infection [None]
  - Pneumonia [None]

NARRATIVE: CASE EVENT DATE: 20230213
